FAERS Safety Report 5101363-4 (Version None)
Quarter: 2006Q3

REPORT INFORMATION
  Report Type: 
  Country: None (occurrence: None)
  Receive Date: 20060906
  Receipt Date: 20060821
  Transmission Date: 20061208
  Serious: Yes (Other)
  Sender: FDA-Public Use
  Company Number: 2006101864

PATIENT
  Age: 74 Year
  Sex: Female

DRUGS (8)
  1. PREDNISOLONE [Suspect]
     Indication: POSTOPERATIVE CARE
  2. CHLORAMPHENICOL [Suspect]
     Indication: DRUG USE FOR UNKNOWN INDICATION
  3. BUPIVACAINE [Suspect]
     Indication: ANAESTHESIA
     Dosage: (4 ML,ONCE)
  4. CEFUROXIME [Suspect]
     Indication: POSTOPERATIVE CARE
     Dosage: SUBCUTANEOUS
     Route: 058
  5. HYALURONIDASE [Suspect]
     Indication: ANAESTHESIA
     Dosage: 4 ML, ONCE)
  6. LIDOCAINE [Suspect]
     Indication: ANAESTHESIA
     Dosage: (4 ML, ONCE)
  7. POVIDONE IODINE [Concomitant]
  8. PROXYMETACAINE (PROXYMETACAINE) [Concomitant]

REACTIONS (5)
  - DRUG HYPERSENSITIVITY [None]
  - EYE OPERATION COMPLICATION [None]
  - EYELID OEDEMA [None]
  - PAROPHTHALMIA [None]
  - VISUAL ACUITY REDUCED [None]
